FAERS Safety Report 18489576 (Version 1)
Quarter: 2020Q4

REPORT INFORMATION
  Report Type: Spontaneous
  Country: US (occurrence: US)
  Receive Date: 20201110
  Receipt Date: 20201110
  Transmission Date: 20210114
  Serious: Yes (Other)
  Sender: FDA-Public Use
  Company Number: None

PATIENT
  Age: 82 Year
  Sex: Male
  Weight: 115 kg

DRUGS (1)
  1. COVID-19 CONVALESCENT PLASMA. [Suspect]
     Active Substance: COVID-19 CONVALESCENT PLASMA
     Indication: COVID-19
     Route: 041
     Dates: start: 20201110, end: 20201110

REACTIONS (1)
  - Rash [None]

NARRATIVE: CASE EVENT DATE: 20201110
